FAERS Safety Report 9760377 (Version 1)
Quarter: 2013Q4

REPORT INFORMATION
  Report Type: Spontaneous
  Country: US (occurrence: US)
  Receive Date: 20131216
  Receipt Date: 20131216
  Transmission Date: 20140711
  Serious: No
  Sender: FDA-Public Use
  Company Number: US-GILEAD-2010-0029187

PATIENT
  Sex: Female
  Weight: 68.95 kg

DRUGS (9)
  1. LETAIRIS [Suspect]
     Indication: PULMONARY ARTERIAL HYPERTENSION
     Route: 048
     Dates: start: 20100223
  2. FUROSEMIDE [Concomitant]
  3. CITRUCEL [Concomitant]
  4. AVALIDE [Concomitant]
  5. AMOXICILLIN [Concomitant]
  6. SIMVASTATIN [Concomitant]
  7. PRIMIDONE [Concomitant]
  8. MULTIVITAMIN [Concomitant]
  9. ADCIRCA [Concomitant]

REACTIONS (3)
  - Cough [Unknown]
  - Nasal discomfort [Unknown]
  - Throat irritation [Unknown]
